FAERS Safety Report 19401125 (Version 1)
Quarter: 2021Q2

REPORT INFORMATION
  Report Type: Spontaneous
  Country: IT (occurrence: IT)
  Receive Date: 20210611
  Receipt Date: 20210611
  Transmission Date: 20210717
  Serious: Yes (Other)
  Sender: FDA-Public Use
  Company Number: IT-AUROBINDO-AUR-APL-2017-37636

PATIENT
  Age: 18 Year
  Sex: Male

DRUGS (20)
  1. ETOPOSIDE. [Suspect]
     Active Substance: ETOPOSIDE
     Indication: NEUROBLASTOMA
     Dosage: 1ST?LINE TREATMENT WITH STANDARD DOSE
  2. CARBOPLATIN. [Suspect]
     Active Substance: CARBOPLATIN
     Indication: NEUROBLASTOMA
     Dosage: UNK
     Route: 065
  3. CYCLOPHOSPHAMIDE. [Suspect]
     Active Substance: CYCLOPHOSPHAMIDE
     Dosage: HIGH?DOSE
  4. EPIRUBICIN [Suspect]
     Active Substance: EPIRUBICIN
     Indication: NEUROBLASTOMA
     Dosage: 1ST?LINE TREATMENT WITH STANDARD DOSE CHEMOTHERAPY
  5. MELPHALAN. [Suspect]
     Active Substance: MELPHALAN
     Indication: NEUROBLASTOMA
     Dosage: HIGH?DOSE
     Route: 065
  6. CISPLATIN. [Suspect]
     Active Substance: CISPLATIN
     Indication: NEUROBLASTOMA
     Dosage: 1ST?LINE TREATMENT WITH STANDARD DOSE
     Route: 065
  7. ETOPOSIDE. [Suspect]
     Active Substance: ETOPOSIDE
     Dosage: HIGH?DOSE
  8. CISPLATIN. [Suspect]
     Active Substance: CISPLATIN
     Dosage: 1ST?LINE TREATMENT WITH STANDARD DOSE
  9. IFOSFAMIDE. [Suspect]
     Active Substance: IFOSFAMIDE
     Indication: NEUROBLASTOMA
     Dosage: 1ST?LINE TREATMENT WITH STANDARD DOSE CHEMOTHERAPY
  10. ETOPOSIDE. [Suspect]
     Active Substance: ETOPOSIDE
     Dosage: 2ND?LINE TREATMENT WITH STANDARD DOSE
  11. VINCRISTINE [Suspect]
     Active Substance: VINCRISTINE
     Indication: NEUROBLASTOMA
     Dosage: 1ST?LINE TREATMENT WITH STANDARD DOSE CHEMOTHERAPY
  12. IFOSFAMIDE. [Suspect]
     Active Substance: IFOSFAMIDE
     Dosage: 1ST?LINE TREATMENT WITH STANDARD DOSE CHEMOTHERAPY
  13. MITOXANTRONE [Suspect]
     Active Substance: MITOXANTRONE HYDROCHLORIDE
     Dosage: HIGH?DOSE
  14. EPIRUBICIN [Suspect]
     Active Substance: EPIRUBICIN
     Dosage: 1ST?LINE TREATMENT WITH STANDARD DOSE CHEMOTHERAPY
  15. ETOPOSIDE. [Suspect]
     Active Substance: ETOPOSIDE
     Dosage: 1ST?LINE TREATMENT WITH STANDARD DOSE
  16. CYCLOPHOSPHAMIDE. [Suspect]
     Active Substance: CYCLOPHOSPHAMIDE
     Indication: NEUROBLASTOMA
     Dosage: HIGH?DOSE
  17. ETOPOSIDE. [Suspect]
     Active Substance: ETOPOSIDE
     Dosage: 2ND?LINE TREATMENT WITH STANDARD DOSE
  18. ETOPOSIDE. [Suspect]
     Active Substance: ETOPOSIDE
     Dosage: HIGH?DOSE
  19. MITOXANTRONE [Suspect]
     Active Substance: MITOXANTRONE HYDROCHLORIDE
     Indication: NEUROBLASTOMA
     Dosage: HIGH?DOSE
  20. VINCRISTINE [Suspect]
     Active Substance: VINCRISTINE
     Dosage: 1ST?LINE TREATMENT WITH STANDARD DOSE CHEMOTHERAPY

REACTIONS (1)
  - Ameloblastoma [Recovered/Resolved]
